FAERS Safety Report 5555978-X (Version None)
Quarter: 2007Q4

REPORT INFORMATION
  Report Type: 
  Country: None (occurrence: None)
  Receive Date: 20071213
  Receipt Date: 20071203
  Transmission Date: 20080405
  Serious: Yes (Hospitalization)
  Sender: FDA-Public Use
  Company Number: FR-PFIZER INC-2007101600

PATIENT
  Age: 58 Year
  Sex: Female

DRUGS (5)
  1. TAHOR [Suspect]
  2. BIOCALYPTOL-PHOLCODINE [Concomitant]
  3. ACETAMINOPHEN [Concomitant]
  4. LOXEN [Concomitant]
  5. KARDEGIC [Concomitant]

REACTIONS (3)
  - FALL [None]
  - LOSS OF CONSCIOUSNESS [None]
  - MALAISE [None]
